FAERS Safety Report 16874891 (Version 4)
Quarter: 2020Q1

REPORT INFORMATION
  Report Type: Spontaneous
  Country: US (occurrence: US)
  Receive Date: 20191001
  Receipt Date: 20200305
  Transmission Date: 20200409
  Serious: No
  Sender: FDA-Public Use
  Company Number: US-JNJFOC-20190938152

PATIENT
  Sex: Female
  Weight: 53.12 kg

DRUGS (18)
  1. PROGESTERONE. [Concomitant]
     Active Substance: PROGESTERONE
     Route: 061
  2. METOPROLOL. [Suspect]
     Active Substance: METOPROLOL
     Indication: HEART RATE IRREGULAR
     Route: 065
     Dates: start: 201908, end: 2019
  3. MAGNESIUM GLYCINATE [Concomitant]
     Active Substance: MAGNESIUM GLYCINATE
     Route: 065
  4. GAMMA-AMINOBUTYRIC ACID [Concomitant]
     Active Substance: .GAMMA.-AMINOBUTYRIC ACID
     Route: 065
  5. CO Q 10                            /00517201/ [Concomitant]
     Route: 065
  6. VITAMIN D3 [Concomitant]
     Active Substance: CHOLECALCIFEROL
  7. BIO SILICA [Concomitant]
     Route: 065
  8. SERRATIOPEPTIDASE [Concomitant]
     Active Substance: SERRAPEPTASE
     Route: 065
  9. XARELTO [Suspect]
     Active Substance: RIVAROXABAN
     Indication: CEREBROVASCULAR ACCIDENT PROPHYLAXIS
  10. CARTIA                             /00002701/ [Concomitant]
     Active Substance: ASPIRIN
     Route: 065
     Dates: start: 20190923
  11. BERBERINE [Concomitant]
     Active Substance: BERBERINE
     Route: 065
  12. MAGNESIUM TAURATE [Concomitant]
     Route: 065
  13. BOSWELLIA SERRATA OIL W/BROMELAINS/COLLAGEN/G [Concomitant]
     Route: 065
  14. NASOCORT [Concomitant]
     Active Substance: BUDESONIDE
     Indication: NASAL DISORDER
  15. LUTEIN ZEAXANTHIN [Concomitant]
     Route: 065
  16. UBIQUINOL [Concomitant]
     Active Substance: UBIQUINOL
     Route: 065
  17. GLUCOSAMINE W/METHYLSULFONYLMETHANE [Concomitant]
  18. XARELTO [Suspect]
     Active Substance: RIVAROXABAN
     Indication: ATRIAL FIBRILLATION
     Dosage: OVER A MONTH AGO
     Route: 048
     Dates: start: 201907

REACTIONS (22)
  - Tinnitus [Unknown]
  - Constipation [Recovering/Resolving]
  - Paraesthesia [Recovering/Resolving]
  - Tremor [Not Recovered/Not Resolved]
  - Anxiety [Not Recovered/Not Resolved]
  - Fatigue [Recovering/Resolving]
  - Apathy [Recovering/Resolving]
  - Muscular weakness [Unknown]
  - Weight decreased [Unknown]
  - Dizziness [Recovered/Resolved]
  - Palpitations [Recovering/Resolving]
  - Memory impairment [Recovering/Resolving]
  - Dyspnoea [Recovering/Resolving]
  - Contusion [Recovering/Resolving]
  - Epistaxis [Recovering/Resolving]
  - Gastrooesophageal reflux disease [Recovering/Resolving]
  - Pruritus [Unknown]
  - Pain in extremity [Unknown]
  - Dehydration [Unknown]
  - Heart rate increased [Unknown]
  - Bladder disorder [Recovering/Resolving]
  - Product label issue [Unknown]

NARRATIVE: CASE EVENT DATE: 2019
